FAERS Safety Report 6939935-4 (Version None)
Quarter: 2010Q3

REPORT INFORMATION
  Report Type: 
  Country: None (occurrence: None)
  Receive Date: 20100825
  Receipt Date: 20100818
  Transmission Date: 20110219
  Serious: Yes (Other)
  Sender: FDA-Public Use
  Company Number: US-PFIZER INC-2010089365

PATIENT
  Sex: Female
  Weight: 113.38 kg

DRUGS (2)
  1. LIPITOR [Suspect]
     Indication: LIPIDS INCREASED
     Dosage: 5 MG, DAILY
     Route: 048
     Dates: start: 20080101
  2. WARFARIN SODIUM [Concomitant]
     Dosage: UNK

REACTIONS (3)
  - DROOLING [None]
  - DYSPNOEA [None]
  - HYPERTENSION [None]
